FAERS Safety Report 5750282-9 (Version None)
Quarter: 2008Q2

REPORT INFORMATION
  Report Type: 
  Country: None (occurrence: None)
  Receive Date: 20080522
  Receipt Date: 20080522
  Transmission Date: 20081010
  Serious: No
  Sender: FDA-Public Use
  Company Number: None

PATIENT
  Age: 22 Year
  Sex: Male
  Weight: 99.7913 kg

DRUGS (1)
  1. CYCLOBENZAPRINE [Suspect]
     Indication: JOINT SPRAIN
     Dosage: 1 PILL PO
     Route: 048
     Dates: start: 20080518, end: 20080519

REACTIONS (4)
  - FATIGUE [None]
  - IMPAIRED WORK ABILITY [None]
  - PHARMACEUTICAL PRODUCT COMPLAINT [None]
  - SOMNOLENCE [None]
